FAERS Safety Report 5895002-2 (Version None)
Quarter: 2008Q3

REPORT INFORMATION
  Report Type: 
  Country: None (occurrence: None)
  Receive Date: 20080924
  Receipt Date: 20080919
  Transmission Date: 20090109
  Serious: Yes (Hospitalization)
  Sender: FDA-Public Use
  Company Number: GB-ROCHE-587280

PATIENT
  Sex: Male
  Weight: 153.2 kg

DRUGS (6)
  1. ORLISTAT [Suspect]
     Indication: OBESITY
     Route: 048
     Dates: start: 20080812
  2. AMINOPHYLLINE [Concomitant]
     Dosage: INDICATION REPORTED AS 'BREATHING'
     Route: 048
  3. ALBUTEROL SPIROS [Concomitant]
     Dosage: REPORTED AS SALBUTAMOL NEBULISERS
     Route: 055
  4. LANSOPRAZOLE [Concomitant]
     Indication: UNEVALUABLE EVENT
     Route: 048
  5. FRUSEMIDE [Concomitant]
     Route: 048
  6. SPIRIVA [Concomitant]
     Dosage: INDICATION REPORTED AS BREATHING. ALSO REPORTED AS SPIRIDA
     Route: 048

REACTIONS (1)
  - CARDIAC FAILURE [None]
